FAERS Safety Report 4747604-4 (Version None)
Quarter: 2005Q3

REPORT INFORMATION
  Report Type: 
  Country: None (occurrence: None)
  Receive Date: 20050818
  Receipt Date: 20041216
  Transmission Date: 20060218
  Serious: No
  Sender: FDA-Public Use
  Company Number: US-BRISTOL-MYERS SQUIBB COMPANY-12797387

PATIENT
  Age: 6 Decade
  Sex: Female

DRUGS (1)
  1. TEQUIN [Suspect]
     Indication: SINUSITIS
     Route: 048
     Dates: start: 20041213

REACTIONS (1)
  - FLUSHING [None]
